FAERS Safety Report 7463566-3 (Version None)
Quarter: 2011Q2

REPORT INFORMATION
  Report Type: 
  Country: None (occurrence: None)
  Receive Date: 20110506
  Receipt Date: 20110425
  Transmission Date: 20111010
  Serious: Yes (Death)
  Sender: FDA-Public Use
  Company Number: MX-SANOFI-AVENTIS-2011SA025621

PATIENT
  Age: 68 Year
  Sex: Female

DRUGS (2)
  1. INSULIN [Suspect]
  2. AMARYL [Suspect]

REACTIONS (1)
  - DEATH [None]
